FAERS Safety Report 14167116 (Version 2)
Quarter: 2018Q1

REPORT INFORMATION
  Report Type: Report from Study
  Country: JP (occurrence: JP)
  Receive Date: 20171107
  Receipt Date: 20180131
  Transmission Date: 20180508
  Serious: Yes (Death, Hospitalization, Other)
  Sender: FDA-Public Use
  Company Number: JP-B.I. PHARMACEUTICALS,INC./RIDGEFIELD-2017-NB-001622

PATIENT
  Age: 70 Year
  Sex: Male
  Weight: 61.7 kg

DRUGS (4)
  1. VFEND [Suspect]
     Active Substance: VORICONAZOLE
     Indication: PRODUCT USED FOR UNKNOWN INDICATION
     Route: 065
     Dates: start: 20121113, end: 20160718
  2. PREDONINE [Concomitant]
     Active Substance: PREDNISOLONE
     Indication: IDIOPATHIC PULMONARY FIBROSIS
     Route: 065
  3. BIBF 1120 [Suspect]
     Active Substance: NINTEDANIB
     Indication: IDIOPATHIC PULMONARY FIBROSIS
     Route: 065
     Dates: start: 20150918, end: 20151109
  4. ELIQUIS [Suspect]
     Active Substance: APIXABAN
     Indication: PRODUCT USED FOR UNKNOWN INDICATION
     Route: 065
     Dates: start: 20151016, end: 20151117

REACTIONS (3)
  - Pneumothorax [Fatal]
  - Haemoptysis [Recovered/Resolved]
  - Interstitial lung disease [Unknown]

NARRATIVE: CASE EVENT DATE: 20151106
